FAERS Safety Report 5519118-5 (Version None)
Quarter: 2007Q4

REPORT INFORMATION
  Report Type: 
  Country: None (occurrence: None)
  Receive Date: 20071114
  Receipt Date: 20071114
  Transmission Date: 20080405
  Serious: Yes (Death)
  Sender: FDA-Public Use
  Company Number: None

PATIENT
  Age: 45 Year
  Sex: Male
  Weight: 104 kg

DRUGS (17)
  1. GLEEVEC [Suspect]
     Indication: GLIOBLASTOMA
     Dosage: 700 MG BID PO
     Route: 048
  2. HYDROXYUREA [Suspect]
     Dosage: 500 MG, BID  PO
     Route: 048
  3. RAD001 [Suspect]
     Dosage: 2.5MG QOD PO
     Route: 048
  4. ACIPHEX [Concomitant]
  5. TRICOR [Concomitant]
  6. AVAPRO [Concomitant]
  7. HYDROCHLOROTHIAZIDE [Concomitant]
  8. FLEXERIL [Concomitant]
  9. DILANTIN [Concomitant]
  10. DECADRON [Concomitant]
  11. HYDROCORTISONE [Concomitant]
  12. ZOFRAN [Concomitant]
  13. DUCOSATE [Concomitant]
  14. FLONASE [Concomitant]
  15. LASIX [Concomitant]
  16. SINGULAIR [Concomitant]
  17. ADVAIR DISKUS 100/50 [Concomitant]

REACTIONS (2)
  - PULMONARY EMBOLISM [None]
  - THROMBOSIS [None]
